FAERS Safety Report 8345665-7 (Version None)
Quarter: 2012Q2

REPORT INFORMATION
  Report Type: 
  Country: None (occurrence: None)
  Receive Date: 20120508
  Receipt Date: 20120419
  Transmission Date: 20120825
  Serious: Yes (Hospitalization)
  Sender: FDA-Public Use
  Company Number: US-BAXTER-2012BAX004607

PATIENT
  Age: 65 Year
  Sex: Male
  Weight: 74.91 kg

DRUGS (4)
  1. DECADRON [Concomitant]
     Indication: MULTIPLE MYELOMA
     Route: 048
     Dates: start: 20111005
  2. CYTOXAN [Suspect]
     Indication: MULTIPLE MYELOMA
     Route: 042
     Dates: start: 20111004
  3. VELCADE [Concomitant]
     Indication: MULTIPLE MYELOMA
     Route: 042
     Dates: start: 20111004
  4. DECADRON [Concomitant]
     Route: 042
     Dates: start: 20111024

REACTIONS (1)
  - DIVERTICULAR PERFORATION [None]
